FAERS Safety Report 20157156 (Version 1)
Quarter: 2021Q4

REPORT INFORMATION
  Report Type: Spontaneous
  Country: US (occurrence: US)
  Receive Date: 20211207
  Receipt Date: 20211207
  Transmission Date: 20220303
  Serious: No
  Sender: FDA-Public Use
  Company Number: US-BRAINTREE LABORATORIES, INC.-2021BTE00806

PATIENT
  Age: 77 Year
  Sex: Female
  Weight: 86.182 kg

DRUGS (8)
  1. SUTAB [Suspect]
     Active Substance: MAGNESIUM SULFATE\POTASSIUM CHLORIDE\SODIUM SULFATE
     Indication: Colonoscopy
     Dosage: 1 X 12 TABLETS, 1X
     Route: 048
     Dates: start: 20211003
  2. LATANOPROST [Concomitant]
     Active Substance: LATANOPROST
     Dosage: 1 DROP, PER EYE 1X/DAY EVERY NIGHT BEFORE BED
  3. METAMUCIL [Concomitant]
     Active Substance: PLANTAGO SEED
     Dosage: 8 PILLS A DAY
  4. PROBIOTICS NOS [Concomitant]
     Active Substance: PROBIOTICS NOS
     Dosage: 1 PILL A DAY
  5. PEPTO-BISMOL [Concomitant]
     Active Substance: BISMUTH SUBSALICYLATE
     Dosage: 1 PILL A DAY
  6. WOMEN^S ONE-A-DAY VITAMIN [Concomitant]
     Dosage: 1 PILL A DAY
  7. VITAMIN K2/D3 [Concomitant]
     Dosage: UNK, 1X/DAY
  8. FISH OIL [Concomitant]
     Active Substance: FISH OIL

REACTIONS (3)
  - Hyperhidrosis [Recovering/Resolving]
  - Eructation [Recovering/Resolving]
  - Nausea [Recovering/Resolving]

NARRATIVE: CASE EVENT DATE: 20211003
